FAERS Safety Report 23940282 (Version 1)
Quarter: 2024Q2

REPORT INFORMATION
  Report Type: Spontaneous
  Country: GB (occurrence: GB)
  Receive Date: 20240605
  Receipt Date: 20240605
  Transmission Date: 20240716
  Serious: Yes (Other)
  Sender: FDA-Public Use
  Company Number: GB-MHRA-TPP11519381C7549182YC1715769198458

PATIENT
  Age: 4 Year
  Sex: Female
  Weight: 94 kg

DRUGS (14)
  1. AMOXICILLIN\CLAVULANATE POTASSIUM [Suspect]
     Active Substance: AMOXICILLIN\CLAVULANATE POTASSIUM
     Indication: Ill-defined disorder
     Dosage: UNK (500MG/125MG)
     Route: 065
     Dates: start: 20240515
  2. AMITRIPTYLINE HYDROCHLORIDE [Concomitant]
     Active Substance: AMITRIPTYLINE HYDROCHLORIDE
     Indication: Ill-defined disorder
     Dosage: UNK (1-2 AT NIGHT)
     Route: 065
     Dates: start: 20240123
  3. CANDESARTAN [Concomitant]
     Active Substance: CANDESARTAN
     Indication: Ill-defined disorder
     Dosage: UNK (TAKE ONE TABLET ONCE A DAY)
     Route: 065
     Dates: start: 20240123
  4. CEPHALEXIN [Concomitant]
     Active Substance: CEPHALEXIN
     Indication: Ill-defined disorder
     Dosage: UNK (TAKE ONE AS NEEDED TO PREVENT CYSTITIS WHEN EXP...)
     Route: 065
     Dates: start: 20221130
  5. CEPHALEXIN [Concomitant]
     Active Substance: CEPHALEXIN
     Indication: Infection prophylaxis
  6. ESTRADIOL [Concomitant]
     Active Substance: ESTRADIOL
     Indication: Ill-defined disorder
     Dosage: UNK (APPLY ONE TWICE WEEKLY, NEEDS BP FOR FURTHER ISSUE)
     Route: 065
     Dates: start: 20230626
  7. FEXOFENADINE [Concomitant]
     Active Substance: FEXOFENADINE HYDROCHLORIDE
     Indication: Ill-defined disorder
     Dosage: UNK (TAKE ONE AS REQUIRED FOR ALLERGY UP TO FOUR TIM...)
     Route: 065
     Dates: start: 20240423
  8. FOLIC ACID [Concomitant]
     Active Substance: FOLIC ACID
     Indication: Ill-defined disorder
     Dosage: UNK (TAKE ONE DAILY EXCEPT DAY OF METHOTREXATE (THUR...)
     Route: 065
     Dates: start: 20230222
  9. LEVOTHYROXINE [Concomitant]
     Active Substance: LEVOTHYROXINE\LEVOTHYROXINE SODIUM
     Indication: Ill-defined disorder
     Dosage: UNK (TAKE ONE TABLET EACH MORNING ALTERNATE DAYS BEF...)
     Route: 065
     Dates: start: 20240108
  10. METHOTREXATE [Concomitant]
     Active Substance: METHOTREXATE
     Indication: Ill-defined disorder
     Dosage: UNK (20MG (EIGHT TABLETS) TO BE TAKEN WEEKLY ON A TH...)
     Route: 065
     Dates: start: 20240126
  11. METOCLOPRAMIDE [Concomitant]
     Active Substance: METOCLOPRAMIDE
     Indication: Ill-defined disorder
     Dosage: UNK (ONE TO BE TAKEN THREE TIMES A DAY- FOR MIGRAINE...)
     Route: 065
     Dates: start: 20221007
  12. MICONAZOLE [Concomitant]
     Active Substance: MICONAZOLE
     Indication: Ill-defined disorder
     Dosage: UNK (FOR MOUTH INFECTION)
     Route: 065
     Dates: start: 20240506
  13. MICONAZOLE [Concomitant]
     Active Substance: MICONAZOLE
     Indication: Infection
  14. OXCARBAZEPINE [Concomitant]
     Active Substance: OXCARBAZEPINE
     Indication: Ill-defined disorder
     Dosage: 1 DOSAGE FORM, DAILY
     Route: 065
     Dates: start: 20240123

REACTIONS (6)
  - Rash [Recovered/Resolved]
  - Swollen tongue [Recovered/Resolved]
  - Vomiting [Unknown]
  - Diarrhoea [Unknown]
  - Illness [Unknown]
  - Dysphagia [Unknown]

NARRATIVE: CASE EVENT DATE: 20240515
